FAERS Safety Report 9311389 (Version 1)
Quarter: 2013Q2

REPORT INFORMATION
  Report Type: Spontaneous
  Country: US (occurrence: US)
  Receive Date: 20130528
  Receipt Date: 20130528
  Transmission Date: 20140414
  Serious: Yes (Hospitalization, Other)
  Sender: FDA-Public Use
  Company Number: US-TARO PHARMACEUTICALS U.S.A., INC-2013SUN00614

PATIENT
  Age: 84 Year
  Sex: Female

DRUGS (3)
  1. PHENYTOIN SODIUM [Suspect]
     Indication: CONVULSION
     Dosage: UNKNOWN
     Route: 065
  2. PHENOBARBITAL [Suspect]
     Indication: CONVULSION
     Dosage: UNK
     Route: 065
  3. PHENOBARBITAL [Suspect]
     Dosage: DOSE DOUBLED
     Route: 065

REACTIONS (4)
  - Cognitive disorder [Recovered/Resolved]
  - Dysarthria [Recovered/Resolved]
  - Gait disturbance [Recovered/Resolved]
  - Status epilepticus [None]
